FAERS Safety Report 5708766-5 (Version None)
Quarter: 2008Q2

REPORT INFORMATION
  Report Type: 
  Country: None (occurrence: None)
  Receive Date: 20080416
  Receipt Date: 20080407
  Transmission Date: 20081010
  Serious: Yes (Hospitalization)
  Sender: FDA-Public Use
  Company Number: 2007BI009391

PATIENT
  Age: 39 Year
  Sex: Female
  Weight: 83 kg

DRUGS (2)
  1. AVONEX [Suspect]
     Indication: RELAPSING-REMITTING MULTIPLE SCLEROSIS
     Dosage: 30 UG;QW;IM
     Route: 030
     Dates: start: 20060101
  2. ENOXAPARIN SODIUM [Concomitant]

REACTIONS (16)
  - ARTHRALGIA [None]
  - CHILLS [None]
  - CYST [None]
  - DRUG INTOLERANCE [None]
  - GENERAL PHYSICAL HEALTH DETERIORATION [None]
  - HAEMORRHAGE INTRACRANIAL [None]
  - HEADACHE [None]
  - HEPATIC LESION [None]
  - HYPERSENSITIVITY [None]
  - INFLUENZA LIKE ILLNESS [None]
  - LYMPH NODE PAIN [None]
  - LYMPHADENOPATHY [None]
  - MYALGIA [None]
  - PAIN IN EXTREMITY [None]
  - SPLENOMEGALY [None]
  - THYMUS ENLARGEMENT [None]
